FAERS Safety Report 6612831-8 (Version None)
Quarter: 2010Q1

REPORT INFORMATION
  Report Type: 
  Country: None (occurrence: None)
  Receive Date: 20100303
  Receipt Date: 20100224
  Transmission Date: 20100710
  Serious: Yes (Hospitalization)
  Sender: FDA-Public Use
  Company Number: CA-ABBOTT-09P-028-0565198-00

PATIENT
  Sex: Female
  Weight: 45 kg

DRUGS (3)
  1. HUMIRA [Suspect]
     Indication: CROHN'S DISEASE
     Route: 058
     Dates: start: 20090115, end: 20090312
  2. 0.1% BETNOVATE [Concomitant]
     Indication: DERMATITIS PSORIASIFORM
     Route: 061
     Dates: start: 20090211, end: 20090212
  3. 0.1% BETNOVATE [Concomitant]
     Indication: INJECTION SITE RASH

REACTIONS (1)
  - CROHN'S DISEASE [None]
